FAERS Safety Report 4492033-4 (Version None)
Quarter: 2004Q4

REPORT INFORMATION
  Report Type: 
  Country: None (occurrence: None)
  Receive Date: 20041029
  Receipt Date: 20041020
  Transmission Date: 20050328
  Serious: Yes (Hospitalization, Other)
  Sender: FDA-Public Use
  Company Number: HQWYE995322OCT04

PATIENT
  Sex: Male

DRUGS (1)
  1. EFFEXOR XR [Suspect]
     Dosage: SEE IMAGE
     Route: 048

REACTIONS (2)
  - ACCIDENT [None]
  - CERVICAL VERTEBRAL FRACTURE [None]
